FAERS Safety Report 4897290-8 (Version None)
Quarter: 2005Q4

REPORT INFORMATION
  Report Type: 
  Country: None (occurrence: None)
  Receive Date: 20051223
  Receipt Date: 20051012
  Transmission Date: 20060501
  Serious: No
  Sender: FDA-Public Use
  Company Number: 05P-163-0313513-00

PATIENT
  Age: 54 Year
  Sex: Male
  Weight: 90.7194 kg

DRUGS (8)
  1. HUMIRA [Suspect]
     Indication: RHEUMATOID ARTHRITIS
     Dosage: 40 MG, 1 IN 2 WK, SUBCUTANEOUS; 40 MG, 1 IN 1 WK, SUBCUTANEOUS
     Route: 058
     Dates: start: 20050801, end: 20050801
  2. HUMIRA [Suspect]
     Indication: RHEUMATOID ARTHRITIS
     Dosage: 40 MG, 1 IN 2 WK, SUBCUTANEOUS; 40 MG, 1 IN 1 WK, SUBCUTANEOUS
     Route: 058
     Dates: start: 20050801
  3. VICODIN [Concomitant]
  4. ACETYLSALICYLIC ACID SRT [Concomitant]
  5. METHOTREXATE [Concomitant]
  6. POTASSIUM [Concomitant]
  7. UNKNOWN HEART MEDICATIONS [Concomitant]
  8. FUROSEMIDE [Concomitant]

REACTIONS (1)
  - DRUG EFFECT DECREASED [None]
